FAERS Safety Report 23670156 (Version 3)
Quarter: 2024Q3

REPORT INFORMATION
  Report Type: Spontaneous
  Country: US (occurrence: US)
  Receive Date: 20240325
  Receipt Date: 20240805
  Transmission Date: 20241016
  Serious: No
  Sender: BLUEPRINT MEDICINES
  Company Number: US-Blueprint Medicines Corporation-2867

PATIENT
  Sex: Male

DRUGS (1)
  1. AYVAKIT [Suspect]
     Active Substance: AVAPRITINIB
     Indication: Systemic mastocytosis
     Route: 065
     Dates: start: 20240224

REACTIONS (8)
  - Renal function test abnormal [Unknown]
  - Nasopharyngitis [Unknown]
  - Somnolence [Unknown]
  - Hair colour changes [Unknown]
  - Alopecia [Unknown]
  - Contusion [Unknown]
  - Fatigue [Unknown]
  - Renal disorder [Unknown]
